FAERS Safety Report 6647219-7 (Version None)
Quarter: 2010Q1

REPORT INFORMATION
  Report Type: 
  Country: None (occurrence: None)
  Receive Date: 20100323
  Receipt Date: 20100312
  Transmission Date: 20100710
  Serious: Yes (Hospitalization)
  Sender: FDA-Public Use
  Company Number: A0817231A

PATIENT
  Age: 38 Year
  Sex: Male

DRUGS (8)
  1. LAMICTAL CD [Suspect]
     Indication: BIPOLAR DISORDER
     Dosage: 25MG PER DAY
     Route: 048
     Dates: start: 20090129, end: 20090101
  2. PREVACID [Concomitant]
  3. ZYPREXA [Concomitant]
     Dosage: 20MG TWICE PER DAY
  4. KLONOPIN [Concomitant]
     Dosage: 2MG THREE TIMES PER DAY
     Dates: start: 20090129
  5. FENTANYL [Concomitant]
  6. NORCO [Concomitant]
  7. TRAZODONE HCL [Concomitant]
     Dosage: 450MG AT NIGHT
  8. DOXEPIN HCL [Concomitant]
     Dosage: 75MG TWICE PER DAY

REACTIONS (12)
  - ADVERSE DRUG REACTION [None]
  - BLISTER [None]
  - BURNING SENSATION [None]
  - DIABETES MELLITUS [None]
  - HIGH FREQUENCY ABLATION [None]
  - HYPOAESTHESIA [None]
  - NERVE BLOCK [None]
  - NERVE INJURY [None]
  - NEURALGIA [None]
  - OCCIPITAL NEURALGIA [None]
  - SENSORY DISTURBANCE [None]
  - STEVENS-JOHNSON SYNDROME [None]
